FAERS Safety Report 5676590-8 (Version None)
Quarter: 2008Q1

REPORT INFORMATION
  Report Type: 
  Country: None (occurrence: None)
  Receive Date: 20080321
  Receipt Date: 20080321
  Transmission Date: 20080703
  Serious: Yes (Other)
  Sender: FDA-Public Use
  Company Number: None

PATIENT
  Sex: Female
  Weight: 85.7298 kg

DRUGS (3)
  1. ATROPINE SULFATE [Suspect]
     Indication: DIAGNOSTIC PROCEDURE
     Dosage: 0.2ML EVERY 2 MIN X 5 IV
     Route: 042
     Dates: start: 20080208
  2. DOBUTAMINE IN DEXTROSE 5% [Suspect]
     Indication: DIAGNOSTIC PROCEDURE
     Dosage: 40U/KG EVERY MIN X 20 IV
     Route: 042
     Dates: start: 20080208
  3. DEFINITY (PERFLUTREN MICROSPHERES) [Concomitant]

REACTIONS (1)
  - BRONCHOSPASM [None]
